FAERS Safety Report 18287941 (Version 8)
Quarter: 2021Q3

REPORT INFORMATION
  Report Type: Spontaneous
  Country: CA (occurrence: CA)
  Receive Date: 20200921
  Receipt Date: 20210914
  Transmission Date: 20211014
  Serious: Yes (Hospitalization, Other)
  Sender: FDA-Public Use
  Company Number: CA-CELLTRION INC.-2020CA023713

PATIENT

DRUGS (14)
  1. INFLECTRA [Suspect]
     Active Substance: INFLIXIMAB-DYYB
     Dosage: 600 MG AT WEEK 0, 2,6, THEN EVERY 8 WEEKS
     Route: 042
     Dates: start: 20200717
  2. INFLECTRA [Suspect]
     Active Substance: INFLIXIMAB-DYYB
     Dosage: 600 MG AT WEEK 0, 2,6, THEN EVERY 8 WEEKS
     Route: 042
     Dates: start: 20210108
  3. MIRTAZAPINE. [Concomitant]
     Active Substance: MIRTAZAPINE
     Dosage: 15 MG Q UNK
     Route: 048
  4. PREDNISONE. [Concomitant]
     Active Substance: PREDNISONE
     Dosage: 40 MG TAPER
     Route: 048
  5. INFLECTRA [Suspect]
     Active Substance: INFLIXIMAB-DYYB
     Indication: COLITIS ULCERATIVE
     Dosage: 600 MG AT WEEK 0, 2,6, THEN EVERY 8 WEEKS
     Route: 042
     Dates: start: 20200606
  6. INFLECTRA [Suspect]
     Active Substance: INFLIXIMAB-DYYB
     Dosage: 600 MG AT WEEK 0, 2,6, THEN EVERY 8 WEEKS
     Route: 042
     Dates: start: 20200619
  7. INFLECTRA [Suspect]
     Active Substance: INFLIXIMAB-DYYB
     Dosage: 600 MG AT WEEK 0, 2,6, THEN EVERY 8 WEEKS
     Route: 042
     Dates: start: 20200911
  8. HYDROMORPHONE [Concomitant]
     Active Substance: HYDROMORPHONE
     Dosage: 1 MG EVERY 7?8 HOURS
     Route: 048
  9. INFLECTRA [Suspect]
     Active Substance: INFLIXIMAB-DYYB
     Dosage: 600 MG AT WEEK 0, 2,6, THEN EVERY 8 WEEKS
     Route: 042
     Dates: start: 20210305
  10. TYLENOL [Concomitant]
     Active Substance: ACETAMINOPHEN
     Dosage: UNK
     Route: 048
  11. INFLECTRA [Suspect]
     Active Substance: INFLIXIMAB-DYYB
     Dosage: 600 MG AT WEEK 0, 2,6, THEN EVERY 8 WEEKS
     Route: 042
     Dates: start: 20201106
  12. INFLECTRA [Suspect]
     Active Substance: INFLIXIMAB-DYYB
     Dosage: 600 MG AT WEEK 0, 2,6, THEN EVERY 8 WEEKS
     Route: 042
     Dates: start: 20210430
  13. INFLECTRA [Suspect]
     Active Substance: INFLIXIMAB-DYYB
     Dosage: 600 MG AT WEEK 0, 2,6, THEN EVERY 8 WEEKS
     Route: 042
     Dates: start: 20210625
  14. INFLECTRA [Suspect]
     Active Substance: INFLIXIMAB-DYYB
     Dosage: 600 MG AT WEEK 0, 2,6, THEN EVERY 8 WEEKS
     Route: 042
     Dates: start: 20210820

REACTIONS (14)
  - Heart rate increased [Unknown]
  - Malaise [Unknown]
  - Swelling face [Unknown]
  - Haematochezia [Unknown]
  - Stress [Not Recovered/Not Resolved]
  - Defaecation urgency [Unknown]
  - Nausea [Unknown]
  - Blood pressure fluctuation [Unknown]
  - Condition aggravated [Unknown]
  - Headache [Unknown]
  - Therapeutic response shortened [Not Recovered/Not Resolved]
  - Electroencephalogram abnormal [Unknown]
  - Seizure [Unknown]
  - Heart rate decreased [Not Recovered/Not Resolved]

NARRATIVE: CASE EVENT DATE: 20200619
